FAERS Safety Report 5945970-5 (Version None)
Quarter: 2008Q4

REPORT INFORMATION
  Report Type: 
  Country: None (occurrence: None)
  Receive Date: 20081107
  Receipt Date: 20081107
  Transmission Date: 20090506
  Serious: Yes (Death)
  Sender: FDA-Public Use
  Company Number: None

PATIENT
  Sex: Female
  Weight: 76 kg

DRUGS (3)
  1. PRIVIGEN [Suspect]
     Indication: INFECTION PROPHYLAXIS
     Dosage: TOTAL DOSE 24 GM IV
     Route: 042
     Dates: start: 20080611
  2. PRIVIGEN [Suspect]
     Indication: INFECTION PROPHYLAXIS
     Dosage: TOTAL DOSE 24 GM IV
     Route: 042
     Dates: start: 20080813
  3. PRIVIGEN [Suspect]
     Dosage: INFUSION STOPPED AT 19 GM

REACTIONS (5)
  - BRONCHOSPASM [None]
  - CARDIAC DISORDER [None]
  - MYOCARDIAL INFARCTION [None]
  - RESPIRATORY FAILURE [None]
  - WHEEZING [None]
